FAERS Safety Report 9792446 (Version 1)
Quarter: 2014Q1

REPORT INFORMATION
  Report Type: Spontaneous
  Country: US (occurrence: US)
  Receive Date: 20140102
  Receipt Date: 20140102
  Transmission Date: 20141002
  Serious: No
  Sender: FDA-Public Use
  Company Number: US-BIOGENIDEC-2013BI123352

PATIENT
  Age: 34 Year
  Sex: Female

DRUGS (4)
  1. TECFIDERA [Suspect]
     Indication: MULTIPLE SCLEROSIS
     Route: 048
     Dates: start: 20131012
  2. LEXAPRO [Concomitant]
  3. WELLBURTIN [Concomitant]
  4. YAZ BIRTH CONTROL [Concomitant]

REACTIONS (2)
  - Flatulence [Unknown]
  - Flushing [Unknown]
